FAERS Safety Report 4285363-2 (Version None)
Quarter: 2004Q1

REPORT INFORMATION
  Report Type: 
  Country: None (occurrence: None)
  Receive Date: 20040202
  Receipt Date: 20040121
  Transmission Date: 20041129
  Serious: Yes (Hospitalization)
  Sender: FDA-Public Use
  Company Number: 2004000936

PATIENT
  Sex: Female

DRUGS (9)
  1. ZYRTEC [Suspect]
     Indication: TOXIC SKIN ERUPTION
     Dosage: ORAL
     Route: 048
     Dates: start: 19990101
  2. ATARAX [Suspect]
     Indication: TOXIC SKIN ERUPTION
     Dates: start: 19990101, end: 19990901
  3. CLOPIDOGREL BISULFATE [Suspect]
     Indication: ANGINA PECTORIS
  4. HEPARIN-FRACTION, SODIUM SALT (HEPARIN-FRACTION, SODIUM SALT) [Suspect]
     Indication: ANGINA PECTORIS
  5. HEPARIN-FRACTION, SODIUM SALT (HEPARIN-FRACTION, SODIUM SALT) [Suspect]
     Indication: COAGULOPATHY
  6. CONTRAST MEDIA [Suspect]
     Indication: ILL-DEFINED DISORDER
     Dosage: INTRAVENOUS
     Route: 042
     Dates: start: 19990501, end: 19990501
  7. DILTIAZEM HYDROCHLORIDE [Suspect]
     Indication: ILL-DEFINED DISORDER
     Dates: start: 19990501, end: 20000601
  8. INFLUENZA VIRUS VACCINE POLYVALENT (INFLUENZA VIRUS VACCINE POLYVALENT [Concomitant]
  9. ACEBUTOLOL [Concomitant]

REACTIONS (3)
  - ECZEMA [None]
  - REACTION TO DRUG EXCIPIENT [None]
  - TOXIC SKIN ERUPTION [None]
